FAERS Safety Report 6294825-8 (Version None)
Quarter: 2009Q3

REPORT INFORMATION
  Report Type: 
  Country: None (occurrence: None)
  Receive Date: 20090803
  Receipt Date: 20090728
  Transmission Date: 20100115
  Serious: Yes (Death, Life-Threatening, Hospitalization)
  Sender: FDA-Public Use
  Company Number: NL-CELGENEUS-114-21880-09040954

PATIENT
  Sex: Female
  Weight: 61 kg

DRUGS (4)
  1. REVLIMID [Suspect]
     Indication: MESOTHELIOMA
     Route: 048
     Dates: start: 20090130, end: 20090327
  2. OXYCONTIN [Concomitant]
     Indication: DRUG USE FOR UNKNOWN INDICATION
     Route: 065
     Dates: start: 20090130
  3. NEXIUM [Concomitant]
     Indication: DRUG USE FOR UNKNOWN INDICATION
     Route: 065
  4. METOCLOPRAMIDE [Concomitant]
     Indication: DRUG USE FOR UNKNOWN INDICATION
     Route: 065

REACTIONS (3)
  - METASTASES TO LUNG [None]
  - PULMONARY EMBOLISM [None]
  - SMALL CELL LUNG CANCER STAGE UNSPECIFIED [None]
